FAERS Safety Report 5878676-1 (Version None)
Quarter: 2008Q3

REPORT INFORMATION
  Report Type: 
  Country: None (occurrence: None)
  Receive Date: 20080910
  Receipt Date: 20080826
  Transmission Date: 20090109
  Serious: Yes (Other)
  Sender: FDA-Public Use
  Company Number: 2008US002282

PATIENT
  Age: 42 Year
  Sex: Male

DRUGS (3)
  1. PROGRAF [Suspect]
     Indication: RENAL TRANSPLANT
     Dosage: 2 MG, BID,
  2. PREDNISOLONE ACETATE [Concomitant]
  3. MYCOPHENOLATE MOFETIL [Concomitant]

REACTIONS (8)
  - CEREBRAL INFARCTION [None]
  - CYTOMEGALOVIRUS VIRAEMIA [None]
  - DISEASE COMPLICATION [None]
  - ENCEPHALOPATHY [None]
  - HERPES ZOSTER [None]
  - INTRACRANIAL ANEURYSM [None]
  - NECROTISING RETINITIS [None]
  - RENAL TUBULAR NECROSIS [None]
